FAERS Safety Report 4611610-0 (Version None)
Quarter: 2005Q1

REPORT INFORMATION
  Report Type: 
  Country: None (occurrence: None)
  Receive Date: 20050317
  Receipt Date: 20050218
  Transmission Date: 20050727
  Serious: Yes (Hospitalization)
  Sender: FDA-Public Use
  Company Number: DE-GLAXOSMITHKLINE-D0045935A

PATIENT
  Age: 61 Year
  Sex: Female

DRUGS (7)
  1. QUILONUM RETARD [Suspect]
     Route: 065
     Dates: start: 20020923
  2. REMERGIL [Suspect]
     Route: 065
     Dates: start: 20020822, end: 20020829
  3. ZYPREXA [Suspect]
     Dosage: 2.5MG PER DAY
     Route: 065
     Dates: start: 20020823, end: 20020905
  4. TREVILOR [Suspect]
     Route: 065
     Dates: start: 20020830, end: 20020920
  5. EDRONAX [Suspect]
     Dosage: 4MG PER DAY
     Route: 065
     Dates: start: 20020924, end: 20020926
  6. TAVOR [Concomitant]
     Route: 065
     Dates: start: 20020823
  7. XIMOVAN [Concomitant]
     Dosage: 7.5MG PER DAY
     Route: 065
     Dates: start: 20020926, end: 20021007

REACTIONS (3)
  - ABDOMINAL PAIN UPPER [None]
  - BLOOD AMYLASE INCREASED [None]
  - LIPASE INCREASED [None]
